FAERS Safety Report 9809934 (Version 2)
Quarter: 2015Q1

REPORT INFORMATION
  Report Type: Spontaneous
  Country: US (occurrence: US)
  Receive Date: 20140110
  Receipt Date: 20150220
  Transmission Date: 20150721
  Serious: Yes (Other)
  Sender: FDA-Public Use
  Company Number: US-SANOFI-AVENTIS-2013SA068246

PATIENT

DRUGS (4)
  1. PLAVIX [Suspect]
     Active Substance: CLOPIDOGREL BISULFATE
     Indication: STENT PLACEMENT
     Route: 065
  2. PLAVIX [Suspect]
     Active Substance: CLOPIDOGREL BISULFATE
     Indication: CEREBROVASCULAR ACCIDENT
     Route: 065
  3. PLAVIX [Suspect]
     Active Substance: CLOPIDOGREL BISULFATE
     Indication: STENT PLACEMENT
     Route: 065
     Dates: start: 200001, end: 200111
  4. PLAVIX [Suspect]
     Active Substance: CLOPIDOGREL BISULFATE
     Indication: CEREBROVASCULAR ACCIDENT
     Route: 065
     Dates: start: 200001, end: 200111

REACTIONS (9)
  - Gastrointestinal haemorrhage [Unknown]
  - Amnesia [Unknown]
  - Cerebral haemorrhage [Unknown]
  - Hemiparesis [Unknown]
  - Motor dysfunction [Unknown]
  - Cerebrovascular accident [Unknown]
  - Ulcer haemorrhage [Unknown]
  - Blindness unilateral [Unknown]
  - Seizure [Unknown]

NARRATIVE: CASE EVENT DATE: 200111
